FAERS Safety Report 10023222 (Version 1)
Quarter: 2014Q1

REPORT INFORMATION
  Report Type: Spontaneous
  Country: US (occurrence: US)
  Receive Date: 20140320
  Receipt Date: 20140320
  Transmission Date: 20141002
  Serious: Yes (Other)
  Sender: FDA-Public Use
  Company Number: US-ROCHE-1362142

PATIENT
  Age: 54 Year
  Sex: Female

DRUGS (7)
  1. XELODA [Suspect]
     Indication: BREAST CANCER
     Route: 048
     Dates: start: 20140115, end: 20140307
  2. XELODA [Suspect]
     Route: 048
     Dates: start: 20140115, end: 20140307
  3. COENZYME Q-10 [Concomitant]
  4. DILANTIN [Concomitant]
  5. HCTZ [Concomitant]
  6. ATENOLOL [Concomitant]
  7. PROCHLORPERAZINE [Concomitant]

REACTIONS (8)
  - Dyspnoea [Recovered/Resolved]
  - Cyanosis [Recovered/Resolved]
  - Disturbance in attention [Not Recovered/Not Resolved]
  - Vision blurred [Not Recovered/Not Resolved]
  - Fatigue [Not Recovered/Not Resolved]
  - Balance disorder [Not Recovered/Not Resolved]
  - Headache [Unknown]
  - Alopecia [Unknown]
